FAERS Safety Report 11391897 (Version 1)
Quarter: 2015Q3

REPORT INFORMATION
  Report Type: Spontaneous
  Country: US (occurrence: None)
  Receive Date: 20150814
  Receipt Date: 20150814
  Transmission Date: 20151125
  Serious: No
  Sender: FDA-Public Use
  Company Number: None

PATIENT
  Age: 8 Year
  Sex: Female
  Weight: 29.94 kg

DRUGS (3)
  1. AMOXICILLIN. [Suspect]
     Active Substance: AMOXICILLIN
     Indication: TOOTH ABSCESS
     Route: 048
     Dates: start: 20150713, end: 20150720
  2. IBUPROFEN. [Concomitant]
     Active Substance: IBUPROFEN
  3. ACETAMINOPHEN. [Concomitant]
     Active Substance: ACETAMINOPHEN

REACTIONS (3)
  - Epistaxis [None]
  - Drug hypersensitivity [None]
  - Stevens-Johnson syndrome [None]

NARRATIVE: CASE EVENT DATE: 20150718
